FAERS Safety Report 6746423-7 (Version None)
Quarter: 2010Q2

REPORT INFORMATION
  Report Type: 
  Country: None (occurrence: None)
  Receive Date: 20100528
  Receipt Date: 20100517
  Transmission Date: 20101027
  Serious: Yes (Death, Other)
  Sender: FDA-Public Use
  Company Number: AU-ROCHE-684976

PATIENT
  Age: 54 Year
  Sex: Male

DRUGS (4)
  1. TRETINOIN [Suspect]
     Indication: ACUTE PROMYELOCYTIC LEUKAEMIA
     Route: 065
  2. IDARUBICIN HCL [Suspect]
     Indication: ACUTE PROMYELOCYTIC LEUKAEMIA
     Route: 065
  3. MERCAPTOPURINE [Suspect]
     Indication: ACUTE PROMYELOCYTIC LEUKAEMIA
     Route: 065
  4. METHOTREXATE [Suspect]
     Indication: ACUTE PROMYELOCYTIC LEUKAEMIA
     Route: 065

REACTIONS (4)
  - ACUTE MYELOID LEUKAEMIA [None]
  - CYTOGENETIC ABNORMALITY [None]
  - HEPATIC FUNCTION ABNORMAL [None]
  - MYELODYSPLASTIC SYNDROME [None]
